FAERS Safety Report 8223271-2 (Version None)
Quarter: 2012Q1

REPORT INFORMATION
  Report Type: 
  Country: None (occurrence: None)
  Receive Date: 20120321
  Receipt Date: 20120312
  Transmission Date: 20120608
  Serious: Yes (Hospitalization, Other)
  Sender: FDA-Public Use
  Company Number: US-ROCHE-1022841

PATIENT
  Sex: Male
  Weight: 59.02 kg

DRUGS (2)
  1. ACCUTANE [Suspect]
     Route: 065
     Dates: start: 19890316, end: 19891031
  2. ACCUTANE [Suspect]
     Indication: ACNE
     Route: 065
     Dates: start: 19861201, end: 19891001

REACTIONS (6)
  - INTESTINAL OBSTRUCTION [None]
  - IRRITABLE BOWEL SYNDROME [None]
  - CROHN'S DISEASE [None]
  - EMOTIONAL DISTRESS [None]
  - INTESTINAL HAEMORRHAGE [None]
  - INFLAMMATORY BOWEL DISEASE [None]
